FAERS Safety Report 7647681-7 (Version None)
Quarter: 2011Q3

REPORT INFORMATION
  Report Type: 
  Country: None (occurrence: None)
  Receive Date: 20110801
  Receipt Date: 20110801
  Transmission Date: 20111222
  Serious: Yes (Life-Threatening)
  Sender: FDA-Public Use
  Company Number: None

PATIENT
  Sex: Female
  Weight: 65.77 kg

DRUGS (3)
  1. KLONOPIN [Concomitant]
     Route: 048
  2. ABILIFY [Suspect]
     Indication: MAJOR DEPRESSION
     Dosage: 10 MG
     Route: 030
     Dates: start: 20110609, end: 20110706
  3. CYMBALTA [Concomitant]
     Route: 048

REACTIONS (5)
  - MULTIPLE SCLEROSIS [None]
  - COORDINATION ABNORMAL [None]
  - ARTHRITIS [None]
  - MUSCULOSKELETAL STIFFNESS [None]
  - DRUG WITHDRAWAL SYNDROME [None]
